FAERS Safety Report 9412243 (Version 1)
Quarter: 2013Q3

REPORT INFORMATION
  Report Type: Spontaneous
  Country: US (occurrence: None)
  Receive Date: 20130719
  Receipt Date: 20130719
  Transmission Date: 20140515
  Serious: No
  Sender: FDA-Public Use
  Company Number: None

PATIENT
  Sex: 0

DRUGS (2)
  1. MIRTAZAPINE [Suspect]
  2. MERTAZAPINE [Suspect]

REACTIONS (3)
  - Product substitution issue [None]
  - Therapeutic response unexpected with drug substitution [None]
  - Disease recurrence [None]
